FAERS Safety Report 8887295 (Version 2)
Quarter: 2012Q4

REPORT INFORMATION
  Report Type: 
  Country: US (occurrence: None)
  Receive Date: 20121105
  Receipt Date: 20121114
  Transmission Date: 20130627
  Serious: Yes (Disabling, Other)
  Sender: FDA-Public Use
  Company Number: None

PATIENT
  Age: 54 Year
  Sex: Female
  Weight: 59.88 kg

DRUGS (1)
  1. MITOMYCIN C [Suspect]
     Indication: LASIK EYE SURGERY
     Dosage: 0.2  ONE TIME DURING SU   Ophthalmic
     Route: 047
     Dates: start: 20120315, end: 20120315

REACTIONS (8)
  - Product contamination [None]
  - Corneal transplant [None]
  - Blindness unilateral [None]
  - Poor quality drug administered [None]
  - Eye operation complication [None]
  - Uveitis [None]
  - Eye infection staphylococcal [None]
  - Staphylococcal infection [None]
